FAERS Safety Report 6614182-4 (Version None)
Quarter: 2010Q1

REPORT INFORMATION
  Report Type: 
  Country: None (occurrence: None)
  Receive Date: 20100304
  Receipt Date: 20100220
  Transmission Date: 20100710
  Serious: Yes (Other)
  Sender: FDA-Public Use
  Company Number: DE-PFIZER INC-2010026186

PATIENT
  Age: 46 Year
  Sex: Male

DRUGS (1)
  1. ATARAX [Suspect]
     Dosage: 2500 MG, 100 TABLETS OF 25 MG TAKEN IN A SINGLE DOSE
     Route: 048
     Dates: start: 20100220, end: 20100220

REACTIONS (5)
  - CONVULSION [None]
  - INTENTIONAL OVERDOSE [None]
  - SOPOR [None]
  - SUICIDE ATTEMPT [None]
  - TACHYCARDIA [None]
